FAERS Safety Report 21823215 (Version 1)
Quarter: 2023Q1

REPORT INFORMATION
  Report Type: Spontaneous
  Country: DE (occurrence: DE)
  Receive Date: 20230105
  Receipt Date: 20230105
  Transmission Date: 20230417
  Serious: Yes (Other)
  Sender: FDA-Public Use
  Company Number: DE-PFIZER INC-PV202200129726

PATIENT
  Sex: Female

DRUGS (8)
  1. VELCADE [Suspect]
     Active Substance: BORTEZOMIB
     Indication: Product used for unknown indication
     Dosage: CYCLIC (C4D28)
     Route: 065
     Dates: start: 20220221
  2. VELCADE [Suspect]
     Active Substance: BORTEZOMIB
     Dosage: UNK UNK, CYCLIC (C1D1)
     Route: 065
     Dates: start: 20211011
  3. DARZALEX [Suspect]
     Active Substance: DARATUMUMAB
     Indication: Product used for unknown indication
     Dosage: UNK, CYCLIC (C4D28)
     Route: 065
     Dates: start: 20221121
  4. DARZALEX [Suspect]
     Active Substance: DARATUMUMAB
     Dosage: UNK UNK, CYCLIC (C1D1)
     Route: 065
     Dates: start: 20211011
  5. DEXAMETHASONE [Suspect]
     Active Substance: DEXAMETHASONE
     Indication: Product used for unknown indication
     Dosage: UNK UNK, CYCLIC (C1D1)
     Route: 065
     Dates: start: 20210927
  6. DEXAMETHASONE [Suspect]
     Active Substance: DEXAMETHASONE
     Dosage: UNK, CYCLIC (C4D28)
     Route: 065
     Dates: start: 20220221
  7. THALIDOMIDE [Suspect]
     Active Substance: THALIDOMIDE
     Indication: Product used for unknown indication
     Dosage: CYCLIC (C4D28)
     Route: 065
     Dates: start: 20220221
  8. THALIDOMIDE [Suspect]
     Active Substance: THALIDOMIDE
     Dosage: UNK UNK, CYCLIC (C1D1)
     Route: 065
     Dates: start: 20211011

REACTIONS (2)
  - Pancytopenia [Unknown]
  - Neoplasm progression [Unknown]
